FAERS Safety Report 15990933 (Version 1)
Quarter: 2019Q1

REPORT INFORMATION
  Report Type: Spontaneous
  Country: CA (occurrence: CA)
  Receive Date: 20190221
  Receipt Date: 20190221
  Transmission Date: 20190418
  Serious: Yes (Hospitalization, Other)
  Sender: FDA-Public Use
  Company Number: CA-PFIZER INC-3125560

PATIENT
  Age: 43 Year
  Sex: Female

DRUGS (23)
  1. DOCETAXEL. [Suspect]
     Active Substance: DOCETAXEL
     Indication: BREAST CANCER FEMALE
     Dosage: 127 MG, CYCLIC (FREQ: 1 WEEK; INTERVAL: 3)
     Route: 042
  2. PERJETA [Suspect]
     Active Substance: PERTUZUMAB
     Dosage: 420 MG, EVERY 3 WEEKS
     Route: 042
  3. EMEND [Concomitant]
     Active Substance: APREPITANT
     Dosage: UNK
  4. CARBOPLATIN. [Suspect]
     Active Substance: CARBOPLATIN
     Dosage: 672 MG, UNK
     Route: 042
  5. CARBOPLATIN. [Suspect]
     Active Substance: CARBOPLATIN
     Dosage: 628 MG, EVERY 3 WEEKS
     Route: 042
  6. DOCETAXEL. [Suspect]
     Active Substance: DOCETAXEL
     Dosage: 127 MG, EVERY 3 WEEKS
     Route: 042
  7. HERCEPTIN [Suspect]
     Active Substance: TRASTUZUMAB
     Dosage: 408 MG, EVERY 3 WEEKS
     Route: 042
  8. PERJETA [Suspect]
     Active Substance: PERTUZUMAB
     Indication: BREAST CANCER FEMALE
     Dosage: 420 MG, CYCLIC (FREQ: 1 WEEK; INTERVAL: 3)
     Route: 042
  9. ZOFRAN [Concomitant]
     Active Substance: ONDANSETRON HYDROCHLORIDE
     Dosage: UNK
  10. DOMPERIDONE [Concomitant]
     Active Substance: DOMPERIDONE
     Dosage: UNK
  11. CARBOPLATIN. [Suspect]
     Active Substance: CARBOPLATIN
     Indication: BREAST CANCER FEMALE
     Dosage: 628 MG, CYCLIC (FREQ: 1 WEEK; INTERVAL: 3)
     Route: 042
  12. DECADRON [Concomitant]
     Active Substance: DEXAMETHASONE
     Dosage: UNK
  13. PANTOLOC [PANTOPRAZOLE SODIUM SESQUIHYDRATE] [Concomitant]
     Active Substance: PANTOPRAZOLE SODIUM
     Dosage: UNK
  14. STEMETIL [PROCHLORPERAZINE] [Concomitant]
     Dosage: UNK
  15. ATIVAN [Concomitant]
     Active Substance: LORAZEPAM
     Dosage: UNK
  16. HERCEPTIN [Suspect]
     Active Substance: TRASTUZUMAB
     Indication: BREAST CANCER FEMALE
     Dosage: 408 MG, CYCLIC (FREQ: 1 WEEK; INTERVAL: 3)
     Route: 042
  17. HERCEPTIN [Suspect]
     Active Substance: TRASTUZUMAB
     Dosage: 544 MG, ONCE
     Route: 042
  18. PERJETA [Suspect]
     Active Substance: PERTUZUMAB
     Dosage: 840 MG, ONCE
     Route: 042
  19. BENADRYL [Concomitant]
     Active Substance: DIPHENHYDRAMINE HYDROCHLORIDE
     Dosage: UNK
  20. TYLENOL [Concomitant]
     Active Substance: ACETAMINOPHEN
     Dosage: UNK
  21. CIPROFLOXACIN. [Concomitant]
     Active Substance: CIPROFLOXACIN
     Dosage: UNK
  22. CARBOPLATIN. [Suspect]
     Active Substance: CARBOPLATIN
     Dosage: 672 MG, UNK
     Route: 042
  23. IMODIUM [Concomitant]
     Active Substance: LOPERAMIDE HYDROCHLORIDE
     Dosage: UNK

REACTIONS (2)
  - Febrile neutropenia [Recovered/Resolved]
  - Pneumonia [Recovered/Resolved]
